FAERS Safety Report 20952539 (Version 5)
Quarter: 2023Q1

REPORT INFORMATION
  Report Type: Report from Study
  Country: US (occurrence: US)
  Receive Date: 20220613
  Receipt Date: 20230310
  Transmission Date: 20230418
  Serious: Yes (Other)
  Sender: FDA-Public Use
  Company Number: US-AMGEN-USASP2022100300

PATIENT
  Age: 38 Year
  Sex: Female

DRUGS (9)
  1. OTEZLA [Suspect]
     Active Substance: APREMILAST
     Indication: Psoriatic arthropathy
     Dosage: 30 MILLIGRAM, BID
     Route: 048
     Dates: start: 2021
  2. OTEZLA [Suspect]
     Active Substance: APREMILAST
     Dosage: 30 MILLIGRAM, BID
     Route: 048
     Dates: start: 20220614
  3. OTEZLA [Suspect]
     Active Substance: APREMILAST
     Dosage: 30 MILLIGRAM, QD
     Route: 048
  4. OTEZLA [Suspect]
     Active Substance: APREMILAST
     Dosage: 10 MILLIGRAM, BID
     Route: 048
     Dates: start: 20230301
  5. BROMFED DM [Concomitant]
     Active Substance: BROMPHENIRAMINE MALEATE\DEXTROMETHORPHAN HYDROBROMIDE\PSEUDOEPHEDRINE HYDROCHLORIDE
     Dosage: UNK
     Route: 065
  6. BUDESONIDE [Concomitant]
     Active Substance: BUDESONIDE
     Dosage: 3 MILLIGRAM
     Route: 065
  7. CLINDAMYCIN HYDROCHLORIDE [Concomitant]
     Active Substance: CLINDAMYCIN HYDROCHLORIDE
     Dosage: 150 MILLIGRAM
     Route: 065
  8. GENTAMICIN [Concomitant]
     Active Substance: GENTAMICIN
     Dosage: 40 MILLIGRAM
     Route: 065
  9. DIETARY SUPPLEMENT\PROBIOTICS [Concomitant]
     Active Substance: DIETARY SUPPLEMENT\PROBIOTICS
     Dosage: UNK
     Route: 065

REACTIONS (7)
  - Pneumonia streptococcal [Unknown]
  - Psoriatic arthropathy [Unknown]
  - Product dose omission issue [Not Recovered/Not Resolved]
  - Product administration interrupted [Unknown]
  - Intentional product misuse [Unknown]
  - Psoriasis [Unknown]
  - Sinusitis [Unknown]

NARRATIVE: CASE EVENT DATE: 20220501
